FAERS Safety Report 6391631-0 (Version None)
Quarter: 2009Q4

REPORT INFORMATION
  Report Type: 
  Country: None (occurrence: None)
  Receive Date: 20091007
  Receipt Date: 20090825
  Transmission Date: 20100525
  Serious: No
  Sender: FDA-Public Use
  Company Number: A0804055A

PATIENT
  Age: 84 Year
  Sex: Male

DRUGS (9)
  1. ADVAIR DISKUS 100/50 [Suspect]
     Indication: DRUG USE FOR UNKNOWN INDICATION
     Dosage: 1PUFF PER DAY
     Route: 055
     Dates: start: 20090710
  2. SPIRIVA [Concomitant]
  3. CARDIZEM [Concomitant]
  4. LASIX [Concomitant]
  5. DOXAZOSIN MESYLATE [Concomitant]
  6. LIPITOR [Concomitant]
  7. VALIUM [Concomitant]
  8. DURALEX [Concomitant]
  9. PERCOCET [Concomitant]

REACTIONS (1)
  - AGEUSIA [None]
